FAERS Safety Report 21182322 (Version 1)
Quarter: 2022Q3

REPORT INFORMATION
  Report Type: Spontaneous
  Country: US (occurrence: US)
  Receive Date: 20220807
  Receipt Date: 20220807
  Transmission Date: 20221027
  Serious: No
  Sender: FDA-Public Use
  Company Number: US-ELI_LILLY_AND_COMPANY-US202208002298

PATIENT
  Age: 58 Year
  Sex: Female

DRUGS (1)
  1. BAQSIMI [Suspect]
     Active Substance: GLUCAGON
     Indication: Blood glucose decreased
     Dosage: 3 MG, UNKNOWN
     Route: 045

REACTIONS (5)
  - Eye swelling [Unknown]
  - Eye pain [Unknown]
  - Ear pain [Unknown]
  - Nasal discomfort [Unknown]
  - Headache [Unknown]

NARRATIVE: CASE EVENT DATE: 20220803
